FAERS Safety Report 16007653 (Version 1)
Quarter: 2019Q1

REPORT INFORMATION
  Report Type: Spontaneous
  Country: US (occurrence: US)
  Receive Date: 20190226
  Receipt Date: 20190226
  Transmission Date: 20190418
  Serious: No
  Sender: FDA-Public Use
  Company Number: US-IGSA-SR10007068

PATIENT
  Age: 63 Year
  Sex: Female
  Weight: 97 kg

DRUGS (12)
  1. ADVAIR HFA [Concomitant]
     Active Substance: FLUTICASONE PROPIONATE\SALMETEROL XINAFOATE
  2. MAXALT [Concomitant]
     Active Substance: RIZATRIPTAN BENZOATE
  3. PROLASTIN-C LIQUID [Suspect]
     Active Substance: .ALPHA.1-PROTEINASE INHIBITOR HUMAN
     Indication: ALPHA-1 ANTI-TRYPSIN DEFICIENCY
     Dosage: 5820 MG, Q.WK.
     Route: 042
     Dates: start: 20180926
  4. SYNTHROID [Concomitant]
     Active Substance: LEVOTHYROXINE SODIUM
  5. LIOTHYRONINE [Concomitant]
     Active Substance: LIOTHYRONINE
  6. LEVOFLOXACIN. [Concomitant]
     Active Substance: LEVOFLOXACIN
  7. PREDNISONE. [Concomitant]
     Active Substance: PREDNISONE
  8. CLONAZEPAM. [Concomitant]
     Active Substance: CLONAZEPAM
  9. BYSTOLIC [Concomitant]
     Active Substance: NEBIVOLOL HYDROCHLORIDE
  10. CYPROHEPTADINE. [Concomitant]
     Active Substance: CYPROHEPTADINE
  11. SPIRIVA [Concomitant]
     Active Substance: TIOTROPIUM BROMIDE MONOHYDRATE
  12. SERTRALINE [Concomitant]
     Active Substance: SERTRALINE HYDROCHLORIDE

REACTIONS (1)
  - Flushing [Recovered/Resolved]

NARRATIVE: CASE EVENT DATE: 20180926
